FAERS Safety Report 5259474-9 (Version None)
Quarter: 2007Q1

REPORT INFORMATION
  Report Type: 
  Country: None (occurrence: None)
  Receive Date: 20070305
  Receipt Date: 20070216
  Transmission Date: 20070707
  Serious: Yes (Hospitalization)
  Sender: FDA-Public Use
  Company Number: 2007RR-05878

PATIENT
  Age: 16 Year
  Sex: Male

DRUGS (1)
  1. IBUPROFEN [Suspect]
     Indication: CHEST PAIN
     Dosage: 600 MG, QID

REACTIONS (2)
  - OXYGEN SATURATION NORMAL [None]
  - THERAPEUTIC RESPONSE UNEXPECTED [None]
